FAERS Safety Report 8531803-X (Version None)
Quarter: 2012Q3

REPORT INFORMATION
  Report Type: 
  Country: None (occurrence: None)
  Receive Date: 20120723
  Receipt Date: 20120709
  Transmission Date: 20120928
  Serious: Yes (Hospitalization, Other)
  Sender: FDA-Public Use
  Company Number: FR-GENZYME-CLOF-1002223

PATIENT
  Sex: Female

DRUGS (3)
  1. CYTARABINE [Suspect]
     Indication: ACUTE MYELOID LEUKAEMIA
     Dosage: 1825 MG, UNK
     Route: 042
     Dates: start: 20120625, end: 20120629
  2. CLOFARABINE [Suspect]
     Indication: ACUTE MYELOID LEUKAEMIA
     Dosage: 54.5 MG, UNK
     Route: 042
     Dates: start: 20120626, end: 20120630
  3. FILGRASTIM [Suspect]
     Indication: PRODUCT USED FOR UNKNOWN INDICATION
     Dosage: 385 MG, UNK
     Route: 042
     Dates: start: 20120625

REACTIONS (4)
  - HUMAN HERPESVIRUS 6 INFECTION [None]
  - HYPERTHERMIA [None]
  - ENCEPHALITIS CYTOMEGALOVIRUS [None]
  - CONVULSION [None]
